FAERS Safety Report 5026441-X (Version None)
Quarter: 2006Q2

REPORT INFORMATION
  Report Type: 
  Country: None (occurrence: None)
  Receive Date: 20060426
  Receipt Date: 20060120
  Transmission Date: 20061013
  Serious: No
  Sender: FDA-Public Use
  Company Number: 2006011693

PATIENT
  Sex: Female
  Weight: 54.4316 kg

DRUGS (4)
  1. LYRICA [Suspect]
     Indication: HERPES ZOSTER
     Dosage: (DAILY), ORAL
     Route: 048
     Dates: start: 20051201
  2. NAMENDA [Concomitant]
  3. FAMVIR [Concomitant]
  4. SYNTHROID [Concomitant]

REACTIONS (1)
  - DYSARTHRIA [None]
